FAERS Safety Report 7251161-0 (Version None)
Quarter: 2011Q1

REPORT INFORMATION
  Report Type: 
  Country: None (occurrence: None)
  Receive Date: 20110105
  Receipt Date: 20101222
  Transmission Date: 20110831
  Serious: Yes (Other)
  Sender: FDA-Public Use
  Company Number: 003-042

PATIENT
  Age: 20 Year
  Sex: Male

DRUGS (2)
  1. CROFAB [Suspect]
     Indication: VENOMOUS BITE
     Dosage: 104 VIALS, OVER 64 HOURS
  2. CROFAB [Suspect]

REACTIONS (3)
  - CONDITION AGGRAVATED [None]
  - OEDEMA PERIPHERAL [None]
  - COAGULOPATHY [None]
